FAERS Safety Report 18252559 (Version 1)
Quarter: 2020Q3

REPORT INFORMATION
  Report Type: Spontaneous
  Country: US (occurrence: US)
  Receive Date: 20200910
  Receipt Date: 20200910
  Transmission Date: 20201103
  Serious: Yes (Other)
  Sender: FDA-Public Use
  Company Number: None

PATIENT
  Age: 62 Year
  Sex: Female
  Weight: 63 kg

DRUGS (6)
  1. DEPAKOTE [Concomitant]
     Active Substance: DIVALPROEX SODIUM
  2. TIROSINT?SOL [Suspect]
     Active Substance: LEVOTHYROXINE SODIUM
     Indication: THYROIDECTOMY
     Dosage: ?          OTHER STRENGTH:NA;QUANTITY:1 ONE AMPULE;?
     Route: 048
     Dates: start: 20200501, end: 20200716
  3. SYNTHOROID [Concomitant]
  4. REMERON [Concomitant]
     Active Substance: MIRTAZAPINE
  5. CLONOPIN [Concomitant]
     Active Substance: CLONAZEPAM
  6. LOSARTIN [Concomitant]
     Active Substance: LOSARTAN

REACTIONS (10)
  - Asthenia [None]
  - Weight increased [None]
  - Manufacturing materials issue [None]
  - Blood thyroid stimulating hormone increased [None]
  - Fatigue [None]
  - Therapeutic response decreased [None]
  - Product substitution issue [None]
  - Feeling abnormal [None]
  - Product complaint [None]
  - Pain [None]

NARRATIVE: CASE EVENT DATE: 20200524
